FAERS Safety Report 6443018-X (Version None)
Quarter: 2009Q4

REPORT INFORMATION
  Report Type: 
  Country: None (occurrence: None)
  Receive Date: 20091117
  Receipt Date: 20091113
  Transmission Date: 20100525
  Serious: Yes (Death, Hospitalization, Other)
  Sender: FDA-Public Use
  Company Number: PHHY2009BR50009

PATIENT
  Sex: Male

DRUGS (3)
  1. EXELON [Suspect]
     Indication: DEMENTIA
     Dosage: UNK
     Route: 048
     Dates: start: 20070101
  2. EXELON [Suspect]
     Indication: MEMORY IMPAIRMENT
  3. HYDERGINE [Concomitant]
     Indication: HEAD DISCOMFORT
     Route: 048

REACTIONS (6)
  - ASTHENIA [None]
  - BENIGN NEOPLASM OF PROSTATE [None]
  - MULTI-ORGAN FAILURE [None]
  - RENAL FAILURE [None]
  - RESPIRATORY FAILURE [None]
  - URETHRAL HAEMORRHAGE [None]
